FAERS Safety Report 26069118 (Version 1)
Quarter: 2025Q4

REPORT INFORMATION
  Report Type: Spontaneous
  Country: GB (occurrence: GB)
  Receive Date: 20251120
  Receipt Date: 20251120
  Transmission Date: 20260118
  Serious: Yes (Disabling, Other)
  Sender: MSN LABORATORIES PRIVATE LIMITED
  Company Number: None

PATIENT

DRUGS (2)
  1. ATORVASTATIN [Suspect]
     Active Substance: ATORVASTATIN
     Indication: Blood cholesterol increased
     Dosage: INCREASED TO 30MG
     Route: 065
     Dates: end: 20251022
  2. LEVOTHYROXINE [Concomitant]
     Active Substance: LEVOTHYROXINE
     Indication: Product used for unknown indication
     Route: 065

REACTIONS (3)
  - Hypoaesthesia [Not Recovered/Not Resolved]
  - Pain in extremity [Recovered/Resolved with Sequelae]
  - Paraesthesia [Unknown]

NARRATIVE: CASE EVENT DATE: 20230101
